FAERS Safety Report 8482605-4 (Version None)
Quarter: 2012Q3

REPORT INFORMATION
  Report Type: 
  Country: None (occurrence: None)
  Receive Date: 20120702
  Receipt Date: 20120626
  Transmission Date: 20120928
  Serious: Yes (Hospitalization, Other)
  Sender: FDA-Public Use
  Company Number: US-MERCK-1203USA00775

PATIENT
  Age: 73 Year
  Sex: Female

DRUGS (3)
  1. SYNTHROID [Concomitant]
     Route: 048
     Dates: start: 19750101
  2. FOSAMAX [Suspect]
     Indication: OSTEOPOROSIS
     Route: 048
     Dates: start: 20010101, end: 20101201
  3. MULTIVITAMIN [Concomitant]
     Route: 048
     Dates: start: 19960701

REACTIONS (21)
  - TOOTH DISORDER [None]
  - UTERINE DISORDER [None]
  - SYNCOPE [None]
  - COUGH [None]
  - HAEMORRHAGIC ANAEMIA [None]
  - DIVERTICULUM INTESTINAL [None]
  - CONFUSIONAL STATE [None]
  - CONSTIPATION [None]
  - LOW TURNOVER OSTEOPATHY [None]
  - FEMUR FRACTURE [None]
  - DYSPNOEA [None]
  - GAIT DISTURBANCE [None]
  - EXERCISE TOLERANCE DECREASED [None]
  - MONOPARESIS [None]
  - HYPOTHYROIDISM [None]
  - OSTEOARTHRITIS [None]
  - ORTHOSTATIC HYPOTENSION [None]
  - ADVERSE EVENT [None]
  - CATARACT [None]
  - PALPITATIONS [None]
  - HYPERTENSION [None]
